FAERS Safety Report 4904238-6 (Version None)
Quarter: 2006Q1

REPORT INFORMATION
  Report Type: 
  Country: None (occurrence: None)
  Receive Date: 20060208
  Receipt Date: 20050815
  Transmission Date: 20060701
  Serious: No
  Sender: FDA-Public Use
  Company Number: US-GLAXOSMITHKLINE-A0570241A

PATIENT
  Age: 64 Year
  Sex: Female

DRUGS (6)
  1. PAROXETINE HCL [Suspect]
     Indication: PANIC DISORDER
     Dosage: 10MG PER DAY
     Route: 048
     Dates: start: 20031027
  2. KLONOPIN [Concomitant]
  3. GLUCOPHAGE [Concomitant]
  4. TRICOR [Concomitant]
  5. PROPRANOLOL [Concomitant]
  6. VITORIN [Concomitant]

REACTIONS (2)
  - ANXIETY [None]
  - PSYCHOMOTOR HYPERACTIVITY [None]
